FAERS Safety Report 4521732-0 (Version None)
Quarter: 2004Q4

REPORT INFORMATION
  Report Type: 
  Country: None (occurrence: None)
  Receive Date: 20041206
  Receipt Date: 20041125
  Transmission Date: 20050328
  Serious: Yes (Other)
  Sender: FDA-Public Use
  Company Number: 2004-10-0171

PATIENT
  Age: 75 Year
  Sex: Male
  Weight: 70 kg

DRUGS (4)
  1. CELESTAMINE TAB [Suspect]
     Indication: ECZEMA ASTEATOTIC
     Dosage: 1 TABLET ORAL
     Route: 048
     Dates: start: 20040827, end: 20040827
  2. AZELASTINE TABLETS [Suspect]
     Indication: ECZEMA
     Dosage: 2 MG ORAL
     Route: 048
     Dates: start: 20040526, end: 20040827
  3. FLAVINE ADENINE DINUCLEOTID [Concomitant]
  4. PYRIDOXAL PHOSPHATE TABLETS [Concomitant]

REACTIONS (5)
  - CONDITION AGGRAVATED [None]
  - DRUG ERUPTION [None]
  - ECZEMA [None]
  - GENERALISED ERYTHEMA [None]
  - TOXIC SKIN ERUPTION [None]
